FAERS Safety Report 8363501-X (Version None)
Quarter: 2012Q1

REPORT INFORMATION
  Report Type: 
  Country: None (occurrence: None)
  Receive Date: 20120323
  Receipt Date: 20110412
  Transmission Date: 20120608
  Serious: Yes (Death)
  Sender: FDA-Public Use
  Company Number: 163-21880-11041496

PATIENT
  Age: 63 Year
  Sex: Male

DRUGS (2)
  1. REVLIMID [Suspect]
     Indication: MULTIPLE MYELOMA
     Dosage: 25 MG, QD 21 DAYS, THEN 7 DAYS  OFF, PO
     Route: 048
     Dates: start: 20110111, end: 20110410
  2. DECADRON [Concomitant]

REACTIONS (1)
  - PNEUMONIA [None]
